FAERS Safety Report 5512736-X (Version None)
Quarter: 2007Q4

REPORT INFORMATION
  Report Type: 
  Country: None (occurrence: None)
  Receive Date: 20071112
  Receipt Date: 20051201
  Transmission Date: 20080405
  Serious: Yes (Death, Hospitalization)
  Sender: FDA-Public Use
  Company Number: US-PFIZER INC-2003149797US

PATIENT
  Sex: Male

DRUGS (4)
  1. IRINOTECAN HCL [Suspect]
     Indication: COLORECTAL CANCER
     Dosage: DAILY DOSE:216MG-FREQ:ON DAY 1 AND 8 EVERY 3 WEEKS
     Route: 042
     Dates: start: 20030205, end: 20030212
  2. CELECOXIB [Suspect]
     Indication: COLORECTAL CANCER
     Dosage: DAILY DOSE:400MG
     Route: 048
  3. ADRUCIL [Suspect]
     Indication: COLORECTAL CANCER
     Dosage: DAILY DOSE:86.5MG-FREQ:ON DAY 1 AND 8 EVERY 3 WEEKS
     Route: 042
     Dates: start: 20030205, end: 20030212
  4. LEUCOVORIN CALCIUM [Suspect]
     Indication: COLORECTAL CANCER
     Dosage: DAILY DOSE:34MG-FREQ:CYCLIC
     Route: 042
     Dates: start: 20030205, end: 20030212

REACTIONS (7)
  - CLOSTRIDIAL INFECTION [None]
  - DEHYDRATION [None]
  - HYPOTENSION [None]
  - MYOCARDIAL INFARCTION [None]
  - NEUTROPENIA [None]
  - RESPIRATORY FAILURE [None]
  - SEPTIC SHOCK [None]
